FAERS Safety Report 15418276 (Version 1)
Quarter: 2018Q3

REPORT INFORMATION
  Report Type: Spontaneous
  Country: US (occurrence: US)
  Receive Date: 20180920
  Receipt Date: 20180920
  Transmission Date: 20181010
  Serious: No
  Sender: FDA-Public Use
  Company Number: None

PATIENT

DRUGS (1)
  1. DALVANCE [Suspect]
     Active Substance: DALBAVANCIN

REACTIONS (5)
  - Asthenia [None]
  - Hyperhidrosis [None]
  - Spinal pain [None]
  - Dyspnoea [None]
  - Therapy cessation [None]
